FAERS Safety Report 24723149 (Version 2)
Quarter: 2024Q4

REPORT INFORMATION
  Report Type: Spontaneous
  Country: US (occurrence: US)
  Receive Date: 20241211
  Receipt Date: 20241213
  Transmission Date: 20250115
  Serious: Yes (Other)
  Sender: BRISTOL-MYERS SQUIBB COMPANY
  Company Number: US-BRISTOL-MYERS SQUIBB COMPANY-2024-192172

PATIENT

DRUGS (2)
  1. ELIQUIS [Interacting]
     Active Substance: APIXABAN
     Indication: Thrombosis
  2. LORBRENA [Interacting]
     Active Substance: LORLATINIB
     Indication: Thrombosis

REACTIONS (2)
  - Thrombosis [Unknown]
  - Drug interaction [Unknown]
